FAERS Safety Report 6505952-1 (Version None)
Quarter: 2009Q4

REPORT INFORMATION
  Report Type: 
  Country: None (occurrence: None)
  Receive Date: 20091218
  Receipt Date: 20091216
  Transmission Date: 20100525
  Serious: Yes (Hospitalization)
  Sender: FDA-Public Use
  Company Number: FR-WYE-G05162509

PATIENT
  Sex: Female
  Weight: 46 kg

DRUGS (6)
  1. ADVIL [Suspect]
     Indication: PHARYNGOTONSILLITIS
     Route: 048
     Dates: start: 20091018
  2. ADVIL [Suspect]
     Indication: PYREXIA
  3. JOSACINE [Concomitant]
     Indication: PHARYNGOTONSILLITIS
     Dosage: UNKNOWN
     Route: 048
     Dates: start: 20091026
  4. JOSACINE [Concomitant]
     Indication: PYREXIA
  5. ORACILLINE [Concomitant]
     Indication: PHARYNGOTONSILLITIS
     Dosage: UNKNOWN
     Route: 048
     Dates: start: 20091018
  6. ORACILLINE [Concomitant]
     Indication: PYREXIA

REACTIONS (7)
  - BONE PAIN [None]
  - CONDITION AGGRAVATED [None]
  - HEART RATE INCREASED [None]
  - PERITONSILLAR ABSCESS [None]
  - PHARYNGOTONSILLITIS [None]
  - POSTURE ABNORMAL [None]
  - WEIGHT DECREASED [None]
